FAERS Safety Report 8080966-1 (Version None)
Quarter: 2012Q1

REPORT INFORMATION
  Report Type: 
  Country: None (occurrence: None)
  Receive Date: 20120130
  Receipt Date: 20120124
  Transmission Date: 20120608
  Serious: Yes (Hospitalization)
  Sender: FDA-Public Use
  Company Number: ZA-MERCK-1109ZAF00018

PATIENT
  Age: 38 Year
  Sex: Female

DRUGS (5)
  1. VYTORIN [Suspect]
     Route: 048
     Dates: start: 20110801, end: 20110914
  2. SIBUTRAMINE HYDROCHLORIDE [Suspect]
     Indication: WEIGHT DECREASED
     Route: 048
  3. VYTORIN [Suspect]
     Indication: TYPE IIA HYPERLIPIDAEMIA
     Route: 048
     Dates: start: 20110303, end: 20110701
  4. VYTORIN [Suspect]
     Route: 048
     Dates: start: 20110303, end: 20110701
  5. VYTORIN [Suspect]
     Route: 048
     Dates: start: 20110801, end: 20110914

REACTIONS (6)
  - BLOOD CREATINE PHOSPHOKINASE INCREASED [None]
  - RHABDOMYOLYSIS [None]
  - MYALGIA [None]
  - DRUG INTERACTION [None]
  - BLOOD URINE [None]
  - HAEMOGLOBIN URINE [None]
